FAERS Safety Report 8556952-1 (Version None)
Quarter: 2012Q3

REPORT INFORMATION
  Report Type: 
  Country: None (occurrence: None)
  Receive Date: 20120801
  Receipt Date: 20120725
  Transmission Date: 20120928
  Serious: Yes (Hospitalization, Other)
  Sender: FDA-Public Use
  Company Number: CA-JNJFOC-20120310693

PATIENT
  Sex: Female
  Weight: 60 kg

DRUGS (4)
  1. REMICADE [Suspect]
     Indication: PSORIATIC ARTHROPATHY
     Route: 042
     Dates: start: 20080801, end: 20120301
  2. REMICADE [Suspect]
     Route: 042
     Dates: start: 20080801, end: 20120301
  3. REMICADE [Suspect]
     Route: 042
     Dates: start: 20090512, end: 20120101
  4. REMICADE [Suspect]
     Indication: PSORIASIS
     Route: 042
     Dates: start: 20090512, end: 20120101

REACTIONS (2)
  - PANCREATIC CARCINOMA [None]
  - WEIGHT DECREASED [None]
